FAERS Safety Report 9554975 (Version 1)
Quarter: 2013Q3

REPORT INFORMATION
  Report Type: Spontaneous
  Country: GB (occurrence: GB)
  Receive Date: 20130926
  Receipt Date: 20130926
  Transmission Date: 20140515
  Serious: Yes (Hospitalization)
  Sender: FDA-Public Use
  Company Number: GB-BRISTOL-MYERS SQUIBB COMPANY-19431311

PATIENT
  Age: 53 Year
  Sex: Male

DRUGS (15)
  1. BYETTA PEN DISPOSABLE [Suspect]
     Indication: OBESITY
     Route: 058
     Dates: start: 2004
  2. BYETTA PEN DISPOSABLE [Suspect]
     Indication: DIABETES MELLITUS
     Route: 058
     Dates: start: 2004
  3. WARFARIN [Concomitant]
  4. NOVORAPID [Concomitant]
  5. ASPIRIN [Concomitant]
     Dosage: ENTEROCAOTED TABS
  6. CITALOPRAM [Concomitant]
     Dosage: MORN?TABS
  7. COLCHICINE [Concomitant]
  8. DOXAZOSIN [Concomitant]
     Dosage: TABS IN THE MORNING
  9. LANSOPRAZOLE [Concomitant]
     Dosage: TABS
  10. FUROSEMIDE [Concomitant]
     Dosage: TABS
  11. LANSOPRAZOLE [Concomitant]
     Dosage: CAPS IN THE NIGHT
  12. LISINOPRIL [Concomitant]
     Dosage: CAPS
  13. SOLIFENACIN SUCCINATE [Concomitant]
  14. BUMETANIDE [Concomitant]
     Dosage: TABS
  15. SIMVASTATIN [Concomitant]

REACTIONS (3)
  - Lymphoedema [Unknown]
  - Local swelling [Unknown]
  - Wrong technique in drug usage process [Unknown]
